FAERS Safety Report 9532120 (Version 1)
Quarter: 2013Q3

REPORT INFORMATION
  Report Type: Report from Study
  Country: DE (occurrence: DE)
  Receive Date: 20130918
  Receipt Date: 20130918
  Transmission Date: 20140515
  Serious: Yes (Other)
  Sender: FDA-Public Use
  Company Number: DE-CELGENEUS-062-21660-13091116

PATIENT
  Age: 65 Year
  Sex: 0

DRUGS (3)
  1. ABRAXANE [Suspect]
     Indication: BREAST CANCER
     Route: 041
  2. EPIRUBICIN [Suspect]
     Indication: BREAST CANCER
     Route: 065
  3. CYCLOPHOSPHAMIDE [Suspect]
     Indication: BREAST CANCER
     Route: 065

REACTIONS (2)
  - Dyspepsia [Recovering/Resolving]
  - Influenza like illness [Recovered/Resolved]
